FAERS Safety Report 9515172 (Version 1)
Quarter: 2013Q1

REPORT INFORMATION
  Report Type: Spontaneous
  Country: US (occurrence: None)
  Receive Date: 20130305
  Receipt Date: 20130305
  Transmission Date: 20140127
  Serious: Yes (Other)
  Sender: FDA-Public Use
  Company Number: 163-21880-12122039

PATIENT
  Age: 81 Year
  Sex: Female

DRUGS (10)
  1. REVLIMID [Suspect]
     Indication: PLASMA CELL MYELOMA
     Dosage: 25 MG, 21 IN 21 D, PO
     Route: 048
     Dates: start: 20121128
  2. VITAMIN B-12 (CYANOCOBALAMIN) (UNKNOWN) [Concomitant]
  3. VICODIN (VICODIN) (UNKNOWN) [Concomitant]
  4. SIMVASTATIN [Concomitant]
  5. MIRALAX (MACROGOL) (UNKNOWN) [Concomitant]
  6. LASIX (FUROSEMIDE) (UNIKNOWN) [Concomitant]
  7. DULCOLAX (B ISACODYL) (UNKNOWN) [Concomitant]
  8. STOOL SOFTENER (DOCUSATE SODIUM) (UNKNOWN) [Concomitant]
  9. ATENOLOL (ATENOLOL) (UNKNOWN) [Concomitant]
  10. ASPIRIN (UNKNOWN) [Concomitant]

REACTIONS (4)
  - Muscle spasms [None]
  - Dizziness [None]
  - Tremor [None]
  - Epistaxis [None]
